FAERS Safety Report 8059875-X (Version None)
Quarter: 2012Q1

REPORT INFORMATION
  Report Type: 
  Country: None (occurrence: None)
  Receive Date: 20120120
  Receipt Date: 20120112
  Transmission Date: 20120608
  Serious: Yes (Hospitalization)
  Sender: FDA-Public Use
  Company Number: US-JNJFOC-20120104908

PATIENT
  Sex: Female
  Weight: 95.26 kg

DRUGS (6)
  1. CRESTOR [Concomitant]
  2. HYDROCHLOROTHIAZIDE [Concomitant]
  3. SERTRALINE HYDROCHLORIDE [Concomitant]
  4. MELOXICAM [Concomitant]
  5. XARELTO [Suspect]
     Indication: ARTHROSCOPY
     Route: 048
  6. XARELTO [Suspect]
     Indication: THROMBOSIS PROPHYLAXIS
     Route: 048

REACTIONS (1)
  - DEEP VEIN THROMBOSIS [None]
